FAERS Safety Report 8827770 (Version 1)
Quarter: 2012Q4

REPORT INFORMATION
  Report Type: 
  Country: CN (occurrence: CN)
  Receive Date: 20121005
  Receipt Date: 20121005
  Transmission Date: 20130627
  Serious: Yes (Other)
  Sender: FDA-Public Use
  Company Number: CN-JNJFOC-20121002165

PATIENT
  Age: 25 Year
  Sex: Female

DRUGS (1)
  1. PARACETAMOL [Suspect]
     Indication: NASOPHARYNGITIS
     Route: 048
     Dates: start: 20091105, end: 20091106

REACTIONS (1)
  - Erythema multiforme [Recovering/Resolving]
